FAERS Safety Report 9565265 (Version 1)
Quarter: 2013Q3

REPORT INFORMATION
  Report Type: Spontaneous
  Country: US (occurrence: US)
  Receive Date: 20130930
  Receipt Date: 20130930
  Transmission Date: 20140515
  Serious: No
  Sender: FDA-Public Use
  Company Number: US-009507513-1309USA004086

PATIENT
  Age: 54 Year
  Sex: Male

DRUGS (12)
  1. VICTRELIS [Suspect]
     Indication: HEPATITIS C
     Dosage: 800 MG, TID
     Route: 048
     Dates: start: 201211
  2. REBETOL [Suspect]
     Route: 048
  3. PEGINTRON [Suspect]
  4. CLARITIN [Concomitant]
  5. RITALIN [Concomitant]
  6. PROZAC [Concomitant]
  7. NEUPOGEN [Concomitant]
  8. DEXAMETHASONE [Concomitant]
  9. EPOGEN [Concomitant]
  10. PROCRIT [Concomitant]
  11. FLUNISOLIDE [Concomitant]
  12. KETOCONAZOLE [Concomitant]

REACTIONS (2)
  - Abdominal discomfort [Recovering/Resolving]
  - Drug dose omission [Unknown]
